FAERS Safety Report 7028669-6 (Version None)
Quarter: 2010Q4

REPORT INFORMATION
  Report Type: 
  Country: None (occurrence: None)
  Receive Date: 20101004
  Receipt Date: 20101004
  Transmission Date: 20110411
  Serious: Yes (Other)
  Sender: FDA-Public Use
  Company Number: None

PATIENT
  Age: 23 Year
  Sex: Male
  Weight: 79.8331 kg

DRUGS (3)
  1. CLONAZEPAM [Suspect]
     Indication: PANIC DISORDER
     Dosage: 1-2 TAB PO TID -3X DAY- PO
     Route: 048
  2. VENLAFAXINE ER GENERIC [Concomitant]
  3. GABAPENTIN [Concomitant]

REACTIONS (2)
  - PRODUCT SUBSTITUTION ISSUE [None]
  - TABLET ISSUE [None]
